FAERS Safety Report 7822858-6 (Version None)
Quarter: 2011Q4

REPORT INFORMATION
  Report Type: 
  Country: None (occurrence: None)
  Receive Date: 20111018
  Receipt Date: 20101214
  Transmission Date: 20120403
  Serious: No
  Sender: FDA-Public Use
  Company Number: US-ASTRAZENECA-2010SE43816

PATIENT
  Age: 13922 Day
  Sex: Male

DRUGS (3)
  1. SYMBICORT [Suspect]
     Dosage: 160/4.5 MCG 1 PUFF BID
     Route: 055
     Dates: start: 20100801
  2. SYMBICORT [Suspect]
     Indication: ASTHMA
     Dosage: 160/4.5 MCG BID
     Route: 055
     Dates: start: 20080101
  3. ALBUTEROL [Concomitant]

REACTIONS (3)
  - INCREASED UPPER AIRWAY SECRETION [None]
  - CHEST DISCOMFORT [None]
  - COUGH [None]
